FAERS Safety Report 20379414 (Version 1)
Quarter: 2022Q1

REPORT INFORMATION
  Report Type: Spontaneous
  Country: IE (occurrence: IE)
  Receive Date: 20220126
  Receipt Date: 20220126
  Transmission Date: 20220423
  Serious: Yes (Death, Hospitalization, Other)
  Sender: FDA-Public Use
  Company Number: None

PATIENT
  Age: 64 Year
  Sex: Female
  Weight: 84 kg

DRUGS (1)
  1. PRADAXA [Suspect]
     Active Substance: DABIGATRAN ETEXILATE MESYLATE
     Indication: Anticoagulant therapy
     Dates: end: 20210920

REACTIONS (4)
  - Multiple organ dysfunction syndrome [Fatal]
  - Gastrointestinal haemorrhage [Fatal]
  - Ischaemic cardiomyopathy [Fatal]
  - Coronary artery disease [Fatal]

NARRATIVE: CASE EVENT DATE: 20210924
